FAERS Safety Report 12917399 (Version 1)
Quarter: 2016Q4

REPORT INFORMATION
  Report Type: Spontaneous
  Country: ES (occurrence: ES)
  Receive Date: 20161107
  Receipt Date: 20161107
  Transmission Date: 20170207
  Serious: Yes (Hospitalization)
  Sender: FDA-Public Use
  Company Number: ES-MYLANLABS-2016M1047260

PATIENT

DRUGS (2)
  1. AMOXICILLINA ACIDO CLAVULANICO MYLAN GENERICS, 875 MG + 125 MG [Suspect]
     Active Substance: AMOXICILLIN\CLAVULANIC ACID
     Indication: GINGIVITIS
     Dosage: UNK
     Route: 048
     Dates: start: 20131222, end: 20140102
  2. CLINDAMYCIN. [Suspect]
     Active Substance: CLINDAMYCIN
     Indication: GINGIVITIS
     Dosage: 300 MG, TID
     Route: 048
     Dates: start: 20140112, end: 20140117

REACTIONS (1)
  - Acute generalised exanthematous pustulosis [Recovered/Resolved]

NARRATIVE: CASE EVENT DATE: 20140117
